FAERS Safety Report 5664211-X (Version None)
Quarter: 2008Q1

REPORT INFORMATION
  Report Type: 
  Country: None (occurrence: None)
  Receive Date: 20080314
  Receipt Date: 20080304
  Transmission Date: 20080703
  Serious: Yes (Other)
  Sender: FDA-Public Use
  Company Number: US-ROCHE-546463

PATIENT
  Age: 55 Year
  Sex: Female
  Weight: 45.8 kg

DRUGS (1)
  1. BONIVA [Suspect]
     Indication: OSTEOPOROSIS
     Dosage: THE PATIENT HAD RECEIVED ONE DOSE FORM ONLY.
     Route: 065
     Dates: start: 20080207, end: 20080213

REACTIONS (5)
  - ARTHRALGIA [None]
  - BACK PAIN [None]
  - CHILLS [None]
  - LOSS OF CONSCIOUSNESS [None]
  - STOMACH DISCOMFORT [None]
